FAERS Safety Report 8354307-6 (Version None)
Quarter: 2012Q2

REPORT INFORMATION
  Report Type: 
  Country: None (occurrence: None)
  Receive Date: 20120511
  Receipt Date: 20120503
  Transmission Date: 20120825
  Serious: Yes (Hospitalization)
  Sender: FDA-Public Use
  Company Number: US-ALEXION-A201200658

PATIENT
  Sex: Female
  Weight: 91.4 kg

DRUGS (3)
  1. FOLIC ACID [Concomitant]
     Dosage: 1 MG, QD
  2. EXTRA STRENGTH TYLENOL [Concomitant]
     Dosage: UNK, 2 PRN
     Route: 048
  3. SOLIRIS [Suspect]
     Indication: PAROXYSMAL NOCTURNAL HAEMOGLOBINURIA
     Dosage: 900 MG, Q2W
     Route: 042
     Dates: start: 20120109

REACTIONS (3)
  - PANCREATITIS [None]
  - CHOLECYSTITIS [None]
  - CHOLELITHIASIS [None]
